FAERS Safety Report 9232677 (Version 1)
Quarter: 2013Q2

REPORT INFORMATION
  Report Type: Spontaneous
  Country: US (occurrence: US)
  Receive Date: 20130416
  Receipt Date: 20130416
  Transmission Date: 20140414
  Serious: No
  Sender: FDA-Public Use
  Company Number: US-009507513-1304USA005052

PATIENT
  Age: 23 Year
  Sex: Female
  Weight: 103.86 kg

DRUGS (1)
  1. IMPLANON [Suspect]
     Indication: CONTRACEPTION
     Dosage: UNK
     Route: 059
     Dates: start: 20120720

REACTIONS (6)
  - Mood swings [Not Recovered/Not Resolved]
  - Menorrhagia [Not Recovered/Not Resolved]
  - Nausea [Not Recovered/Not Resolved]
  - Vomiting [Not Recovered/Not Resolved]
  - Implant site pruritus [Not Recovered/Not Resolved]
  - Device breakage [Not Recovered/Not Resolved]
